FAERS Safety Report 7811145-8 (Version None)
Quarter: 2011Q4

REPORT INFORMATION
  Report Type: 
  Country: None (occurrence: None)
  Receive Date: 20111012
  Receipt Date: 20111012
  Transmission Date: 20120403
  Serious: Yes (Hospitalization)
  Sender: FDA-Public Use
  Company Number: None

PATIENT
  Sex: Female
  Weight: 69 kg

DRUGS (3)
  1. DOXORUBICIN HCL [Suspect]
     Dosage: 108 MG
  2. CYCLOPHOSPHAMIDE [Suspect]
     Dosage: 1080 MG
  3. NEULASTA [Suspect]
     Dosage: 6 MG

REACTIONS (2)
  - NEUTROPHIL COUNT DECREASED [None]
  - BODY TEMPERATURE INCREASED [None]
